FAERS Safety Report 4834414-2 (Version None)
Quarter: 2005Q4

REPORT INFORMATION
  Report Type: 
  Country: None (occurrence: None)
  Receive Date: 20051122
  Receipt Date: 20051109
  Transmission Date: 20060501
  Serious: Yes (Hospitalization)
  Sender: FDA-Public Use
  Company Number: PHEH2005US12409

PATIENT

DRUGS (1)
  1. ZELNORM [Suspect]
     Dosage: 6 MG, UNK

REACTIONS (1)
  - INTESTINAL OBSTRUCTION [None]
